FAERS Safety Report 7729076-0 (Version None)
Quarter: 2011Q3

REPORT INFORMATION
  Report Type: 
  Country: None (occurrence: None)
  Receive Date: 20110831
  Receipt Date: 20110831
  Transmission Date: 20111222
  Serious: Yes (Other)
  Sender: FDA-Public Use
  Company Number: None

PATIENT
  Sex: Female
  Weight: 131.4 kg

DRUGS (2)
  1. GLIMEPIRIDE [Suspect]
     Indication: TYPE 2 DIABETES MELLITUS
     Dosage: GLIMEPERIDE 2MG BID PO
     Route: 048
     Dates: start: 20100101, end: 20110101
  2. GLIMEPIRIDE [Suspect]
     Route: 048

REACTIONS (5)
  - DRUG DOSE OMISSION [None]
  - SOMNOLENCE [None]
  - FEELING ABNORMAL [None]
  - SEDATION [None]
  - ABNORMAL DREAMS [None]
